FAERS Safety Report 7313148-9 (Version None)
Quarter: 2011Q1

REPORT INFORMATION
  Report Type: 
  Country: None (occurrence: None)
  Receive Date: 20110216
  Receipt Date: 20110216
  Transmission Date: 20110831
  Serious: Yes (Other)
  Sender: FDA-Public Use
  Company Number: None

PATIENT
  Sex: Male
  Weight: 79.3795 kg

DRUGS (2)
  1. COSOPT [Suspect]
  2. DORZOLAMIDE HYDROCHLORIDE AND TIMOLOL MALEATE [Suspect]
     Indication: GLAUCOMA
     Dosage: 4 DROPS DAILY EYES FOR YEARS

REACTIONS (3)
  - PRODUCT SUBSTITUTION ISSUE [None]
  - PRODUCT DROPPER ISSUE [None]
  - PRODUCT PACKAGING QUANTITY ISSUE [None]
